FAERS Safety Report 16957638 (Version 1)
Quarter: 2019Q4

REPORT INFORMATION
  Report Type: Spontaneous
  Country: FR (occurrence: FR)
  Receive Date: 20191024
  Receipt Date: 20191024
  Transmission Date: 20200122
  Serious: Yes (Other)
  Sender: FDA-Public Use
  Company Number: FR-BAUSCH-BL-2019-058641

PATIENT
  Age: 54 Year
  Sex: Female
  Weight: 79 kg

DRUGS (17)
  1. CLOZAPINE MYLAN [Suspect]
     Active Substance: CLOZAPINE
     Indication: MEDICATION ERROR
     Dosage: SCORED TABLET (1 IN TOTAL)
     Route: 048
     Dates: start: 20190921, end: 20190921
  2. LEPTICUR [Concomitant]
     Active Substance: TROPATEPINE HYDROCHLORIDE
     Indication: PRODUCT USED FOR UNKNOWN INDICATION
     Dosage: NOT ADMINISTERED
  3. TEMESTA (LORAZEPAM) [Suspect]
     Active Substance: LORAZEPAM
     Indication: MEDICATION ERROR
     Dosage: SCORED TABLET (1 IN TOTAL)
     Route: 048
     Dates: start: 20190921, end: 20190921
  4. BIKTARVY [Concomitant]
     Active Substance: BICTEGRAVIR SODIUM\EMTRICITABINE\TENOFOVIR ALAFENAMIDE FUMARATE
     Indication: PRODUCT USED FOR UNKNOWN INDICATION
     Dosage: NOT ADMINISTERED
  5. AMLOR [Concomitant]
     Active Substance: AMLODIPINE BESYLATE
     Indication: PRODUCT USED FOR UNKNOWN INDICATION
     Dosage: NOT ADMINISTERED
  6. LOXAPAC [Concomitant]
     Active Substance: LOXAPINE
     Indication: PRODUCT USED FOR UNKNOWN INDICATION
     Dosage: NOT ADMINISTERED
  7. SEROPRAM [Concomitant]
     Indication: PRODUCT USED FOR UNKNOWN INDICATION
     Dosage: NOT ADMINISTERED
  8. DEPAKOTE [Suspect]
     Active Substance: DIVALPROEX SODIUM
     Indication: MEDICATION ERROR
     Dosage: 1 IN TOTAL
     Route: 048
     Dates: start: 20190921, end: 20190921
  9. LOXAPAC [Suspect]
     Active Substance: LOXAPINE
     Indication: MEDICATION ERROR
     Dosage: 1 IN TOTAL
     Route: 048
     Dates: start: 20190921, end: 20190921
  10. HALDOL [Suspect]
     Active Substance: HALOPERIDOL
     Indication: MEDICATION ERROR
     Dosage: 1 IN TOTAL
     Route: 048
     Dates: start: 20190921, end: 20190921
  11. PHENERGAN [Suspect]
     Active Substance: PROMETHAZINE HYDROCHLORIDE
     Indication: MEDICATION ERROR
     Dosage: 1 IN TOTAL
     Route: 048
     Dates: start: 20190921, end: 20190921
  12. TERCIAN [Concomitant]
     Active Substance: CYAMEMAZINE
     Indication: PRODUCT USED FOR UNKNOWN INDICATION
     Dosage: NOT ADMINISTERED
  13. RISPERDAL [Concomitant]
     Active Substance: RISPERIDONE
     Indication: PRODUCT USED FOR UNKNOWN INDICATION
     Dosage: NOT ADMINISTERED
  14. MESTINON [Suspect]
     Active Substance: PYRIDOSTIGMINE BROMIDE
     Indication: MEDICATION ERROR
     Dosage: 1 IN TOTAL
     Route: 048
     Dates: start: 20190921, end: 20190921
  15. IMOVANE [Concomitant]
     Active Substance: ZOPICLONE
     Indication: PRODUCT USED FOR UNKNOWN INDICATION
     Dosage: NOT ADMINISTERED
  16. ELAVIL [Concomitant]
     Active Substance: AMITRIPTYLINE HYDROCHLORIDE
     Indication: PRODUCT USED FOR UNKNOWN INDICATION
     Dosage: NOT ADMINISTERED
  17. MOPRAL [Concomitant]
     Active Substance: OMEPRAZOLE
     Indication: PRODUCT USED FOR UNKNOWN INDICATION
     Dosage: NOT ADMINISTERED

REACTIONS (3)
  - Bradykinesia [Recovered/Resolved]
  - Somnolence [Recovered/Resolved]
  - Salivary hypersecretion [Recovered/Resolved]

NARRATIVE: CASE EVENT DATE: 20190921
